FAERS Safety Report 16582952 (Version 10)
Quarter: 2019Q4

REPORT INFORMATION
  Report Type: Spontaneous
  Country: JP (occurrence: JP)
  Receive Date: 20190717
  Receipt Date: 20191205
  Transmission Date: 20200122
  Serious: Yes (Other)
  Sender: FDA-Public Use
  Company Number: JP-BEH-2019104466

PATIENT
  Age: 29 Year
  Sex: Female
  Weight: 52.2 kg

DRUGS (8)
  1. HIZENTRA [Suspect]
     Active Substance: HUMAN IMMUNOGLOBULIN G
     Indication: CHRONIC INFLAMMATORY DEMYELINATING POLYRADICULONEUROPATHY
     Dosage: 20 GRAM, QW
     Route: 058
     Dates: start: 20190709
  2. HIZENTRA [Suspect]
     Active Substance: HUMAN IMMUNOGLOBULIN G
     Dosage: 20 GRAM, QOD
     Route: 058
     Dates: start: 20190808, end: 20190809
  3. RINDERON V [Concomitant]
     Active Substance: BETAMETHASONE VALERATE
     Dosage: UNK
     Route: 065
     Dates: start: 20190709, end: 20190709
  4. METHYCOBAL [Concomitant]
     Active Substance: METHYLCOBALAMIN
     Indication: CHRONIC INFLAMMATORY DEMYELINATING POLYRADICULONEUROPATHY
     Dosage: 500 MICROGRAM, QD
     Route: 048
  5. HIZENTRA [Suspect]
     Active Substance: HUMAN IMMUNOGLOBULIN G
     Dosage: 24 GRAM
     Route: 058
     Dates: start: 20190814
  6. MECOBALAMIN [Concomitant]
     Active Substance: METHYLCOBALAMIN
     Route: 065
  7. LYRICA [Concomitant]
     Active Substance: PREGABALIN
     Indication: CHRONIC INFLAMMATORY DEMYELINATING POLYRADICULONEUROPATHY
     Dosage: 25 MILLIGRAM, QD
     Route: 048
  8. HIZENTRA [Suspect]
     Active Substance: HUMAN IMMUNOGLOBULIN G
     Indication: CHRONIC INFLAMMATORY DEMYELINATING POLYRADICULONEUROPATHY
     Dosage: 20 GRAM (5VIALS), QW
     Route: 058
     Dates: start: 20190724

REACTIONS (11)
  - Pruritus [Recovered/Resolved]
  - Injection site erythema [Recovered/Resolved]
  - Sensory disturbance [Not Recovered/Not Resolved]
  - Injection site oedema [Recovered/Resolved]
  - Hypoaesthesia [Not Recovered/Not Resolved]
  - No adverse event [Unknown]
  - Overdose [Unknown]
  - Administration site warmth [Recovered/Resolved]
  - Injection site induration [Recovered/Resolved]
  - Hypoaesthesia [Not Recovered/Not Resolved]
  - Injection site extravasation [Recovered/Resolved]

NARRATIVE: CASE EVENT DATE: 20190709
